FAERS Safety Report 5250728-9 (Version None)
Quarter: 2007Q1

REPORT INFORMATION
  Report Type: 
  Country: None (occurrence: None)
  Receive Date: 20070228
  Receipt Date: 20060627
  Transmission Date: 20070707
  Serious: No
  Sender: FDA-Public Use
  Company Number: US-GLAXOSMITHKLINE-A0610499A

PATIENT
  Age: 38 Year
  Sex: Male

DRUGS (5)
  1. LAMICTAL [Suspect]
     Indication: BIPOLAR DISORDER
     Dosage: 25MG PER DAY
     Route: 048
     Dates: start: 20060620
  2. COMBIVIR [Concomitant]
  3. WELLBUTRIN [Concomitant]
  4. PROZAC [Concomitant]
  5. VIRACEPT [Concomitant]

REACTIONS (2)
  - EAR PAIN [None]
  - LYMPHADENOPATHY [None]
